FAERS Safety Report 7744783-1 (Version None)
Quarter: 2011Q3

REPORT INFORMATION
  Report Type: 
  Country: None (occurrence: None)
  Receive Date: 20110912
  Receipt Date: 20110912
  Transmission Date: 20111222
  Serious: Yes (Other)
  Sender: FDA-Public Use
  Company Number: None

PATIENT
  Age: 77 Year
  Sex: Male

DRUGS (2)
  1. HEPARIN [Suspect]
     Indication: ATRIAL FIBRILLATION
     Dosage: 950 UNITS/HR
     Route: 041
     Dates: start: 20110601, end: 20110604
  2. HEPARIN [Suspect]
     Indication: CORONARY ARTERY BYPASS
     Dosage: 950 UNITS/HR
     Route: 041
     Dates: start: 20110601, end: 20110604

REACTIONS (1)
  - HAEMATURIA [None]
